FAERS Safety Report 5118683-X (Version None)
Quarter: 2006Q3

REPORT INFORMATION
  Report Type: 
  Country: None (occurrence: None)
  Receive Date: 20060927
  Receipt Date: 20060915
  Transmission Date: 20061208
  Serious: Yes (Hospitalization, Disabling)
  Sender: FDA-Public Use
  Company Number: HQWYE780115SEP06

PATIENT
  Age: 82 Year
  Sex: Female

DRUGS (1)
  1. INDERAL [Suspect]
     Indication: PANIC ATTACK
     Dosage: 40 MG 2X PER 1 DAY ORAL
     Route: 048
     Dates: end: 20060621

REACTIONS (1)
  - PARAESTHESIA [None]
